FAERS Safety Report 6165531-5 (Version None)
Quarter: 2009Q2

REPORT INFORMATION
  Report Type: 
  Country: None (occurrence: None)
  Receive Date: 20090423
  Receipt Date: 20080315
  Transmission Date: 20091009
  Serious: No
  Sender: FDA-Public Use
  Company Number: US-BRISTOL-MYERS SQUIBB COMPANY-14121271

PATIENT

DRUGS (1)
  1. CARBOPLATIN [Suspect]
     Dosage: AQUEOUS SOLUTION-INJ

REACTIONS (1)
  - DRUG INEFFECTIVE [None]
